FAERS Safety Report 5968047-1 (Version None)
Quarter: 2008Q4

REPORT INFORMATION
  Report Type: 
  Country: None (occurrence: None)
  Receive Date: 20081126
  Receipt Date: 20081119
  Transmission Date: 20090506
  Serious: Yes (Hospitalization)
  Sender: FDA-Public Use
  Company Number: US-ASTRAZENECA-2008UW25950

PATIENT
  Age: 51 Year
  Sex: Female

DRUGS (2)
  1. SEROQUEL [Suspect]
     Route: 048
     Dates: start: 20081015, end: 20081117
  2. ALCOHOL [Suspect]

REACTIONS (3)
  - BLOOD ALCOHOL INCREASED [None]
  - CHEST PAIN [None]
  - HEPATIC ENZYME INCREASED [None]
